FAERS Safety Report 6479582-4 (Version None)
Quarter: 2009Q4

REPORT INFORMATION
  Report Type: 
  Country: None (occurrence: None)
  Receive Date: 20091208
  Receipt Date: 20091130
  Transmission Date: 20100525
  Serious: Yes (Other)
  Sender: FDA-Public Use
  Company Number: US-JNJFOC-20091200623

PATIENT
  Sex: Female
  Weight: 63.5 kg

DRUGS (2)
  1. DURAGESIC-100 [Suspect]
     Indication: PAIN
     Route: 062
     Dates: end: 20091127
  2. DURAGESIC-100 [Suspect]
     Route: 062
     Dates: start: 20091127

REACTIONS (6)
  - DRUG EXPOSURE DURING PREGNANCY [None]
  - DYSPNOEA [None]
  - HYPERVENTILATION [None]
  - PRODUCT QUALITY ISSUE [None]
  - PRURITUS [None]
  - WITHDRAWAL SYNDROME [None]
